FAERS Safety Report 4889883-9 (Version None)
Quarter: 2006Q1

REPORT INFORMATION
  Report Type: 
  Country: None (occurrence: None)
  Receive Date: 20060124
  Receipt Date: 20051004
  Transmission Date: 20060701
  Serious: Yes (Hospitalization, Other)
  Sender: FDA-Public Use
  Company Number: US-MERCK-0510USA04002

PATIENT
  Age: 70 Year
  Sex: Female
  Weight: 57 kg

DRUGS (23)
  1. VIOXX [Suspect]
     Indication: OSTEOARTHRITIS
     Route: 048
     Dates: start: 20011107, end: 20021218
  2. PREMARIN [Concomitant]
     Indication: HORMONE REPLACEMENT THERAPY
     Route: 048
     Dates: start: 20020211, end: 20030702
  3. FERROUS SULFATE [Concomitant]
     Indication: IRON DEFICIENCY
     Route: 048
     Dates: start: 20020501, end: 20041031
  4. HYTRIN [Concomitant]
     Indication: HYPERTENSION
     Route: 048
     Dates: start: 20020404, end: 20041101
  5. HYTRIN [Concomitant]
     Route: 048
  6. CATAPRES [Concomitant]
     Indication: HYPERTENSION
     Route: 048
     Dates: start: 20020329, end: 20041031
  7. LOZOL [Concomitant]
     Route: 048
     Dates: start: 20020426, end: 20020924
  8. PAMELOR [Concomitant]
     Route: 048
  9. XANAX [Concomitant]
     Route: 048
  10. ANTIVERT [Concomitant]
     Route: 048
  11. PHENERGAN SYRUP [Concomitant]
     Indication: NAUSEA
     Route: 048
  12. PHENERGAN SYRUP [Concomitant]
     Indication: VOMITING
     Route: 048
  13. VITAMIN E [Concomitant]
     Route: 048
  14. CLARITIN [Concomitant]
     Route: 048
  15. BECONASE AQ [Concomitant]
     Route: 055
  16. THIOSOL [Concomitant]
     Route: 048
  17. DURADRIN [Concomitant]
     Indication: HEADACHE
     Route: 065
  18. DURADRIN [Concomitant]
     Indication: ARTHRITIS
     Route: 065
  19. HYDROCODONE BITARTRATE + ACETAMINOPHEN [Concomitant]
     Indication: ARTHRITIS
     Route: 048
     Dates: start: 20020427, end: 20031231
  20. ULTRAM [Concomitant]
     Indication: ARTHRITIS
     Route: 065
     Dates: start: 19980324, end: 20040514
  21. DAYPRO [Concomitant]
     Indication: ARTHRITIS
     Route: 065
     Dates: start: 19960611
  22. MEDROL [Concomitant]
     Route: 065
     Dates: start: 19960611
  23. CLARITIN [Concomitant]
     Route: 065

REACTIONS (6)
  - CAROTID ARTERY ATHEROMA [None]
  - CEREBELLAR INFARCTION [None]
  - CEREBROVASCULAR ACCIDENT [None]
  - ENCEPHALOMALACIA [None]
  - LABILE HYPERTENSION [None]
  - LACUNAR INFARCTION [None]
